FAERS Safety Report 6163825-0 (Version None)
Quarter: 2009Q2

REPORT INFORMATION
  Report Type: 
  Country: None (occurrence: None)
  Receive Date: 20090420
  Receipt Date: 20090407
  Transmission Date: 20091009
  Serious: Yes (Hospitalization)
  Sender: FDA-Public Use
  Company Number: 2009003714

PATIENT
  Age: 70 Year
  Sex: Male

DRUGS (1)
  1. TREANDA [Suspect]
     Indication: CHRONIC LYMPHOCYTIC LEUKAEMIA
     Dosage: 169.02 MG (90 MG/M2, CYCLICAL),INTRAVENOUS
     Route: 042
     Dates: start: 20090304, end: 20090305

REACTIONS (3)
  - PLATELET COUNT DECREASED [None]
  - PURPURA [None]
  - RASH MACULO-PAPULAR [None]
